FAERS Safety Report 6389874-5 (Version None)
Quarter: 2009Q4

REPORT INFORMATION
  Report Type: 
  Country: None (occurrence: None)
  Receive Date: 20091006
  Receipt Date: 20090105
  Transmission Date: 20100525
  Serious: No
  Sender: FDA-Public Use
  Company Number: US-BRISTOL-MYERS SQUIBB COMPANY-14460968

PATIENT
  Age: 47 Year
  Sex: Male

DRUGS (9)
  1. AVALIDE [Suspect]
  2. KARVEA [Suspect]
     Dosage: KARVEA HCT. 1 DOSAGEFORM = 325/25MG
     Route: 048
     Dates: start: 20080601
  3. HUMIRA [Suspect]
     Indication: PSORIATIC ARTHROPATHY
     Dosage: HUMIRA 40MG/0.8ML PEN
     Route: 058
     Dates: start: 20080301
  4. HUMIRA [Suspect]
     Indication: RHEUMATOID ARTHRITIS
     Dosage: HUMIRA 40MG/0.8ML PEN
     Route: 058
     Dates: start: 20080301
  5. NAPROXEN SODIUM [Concomitant]
     Dosage: 750MG DAILY, 375MG TWICE A DAY
     Route: 048
  6. OXYCODONE [Concomitant]
     Route: 048
  7. ZOLPIDEM TARTRATE [Concomitant]
     Route: 048
  8. PREDNISONE [Concomitant]
     Route: 048
  9. DIAZEPAM [Concomitant]
     Route: 048

REACTIONS (1)
  - FATIGUE [None]
